FAERS Safety Report 22063693 (Version 1)
Quarter: 2023Q1

REPORT INFORMATION
  Report Type: Spontaneous
  Country: US (occurrence: US)
  Receive Date: 20230306
  Receipt Date: 20230306
  Transmission Date: 20230417
  Serious: No
  Sender: FDA-Public Use
  Company Number: US-BIOGEN-2019BI00741900

PATIENT
  Age: 30 Year
  Sex: Female

DRUGS (2)
  1. TYSABRI [Suspect]
     Active Substance: NATALIZUMAB
     Indication: Multiple sclerosis
     Dosage: INFUSED OVER 1 HOUR
     Route: 050
     Dates: start: 20150226
  2. TYSABRI [Suspect]
     Active Substance: NATALIZUMAB
     Route: 050
     Dates: start: 20221012

REACTIONS (3)
  - Prescribed underdose [Not Recovered/Not Resolved]
  - Inappropriate schedule of product administration [Unknown]
  - Heavy menstrual bleeding [Unknown]

NARRATIVE: CASE EVENT DATE: 20150226
